FAERS Safety Report 9701551 (Version 2)
Quarter: 2013Q4

REPORT INFORMATION
  Report Type: Spontaneous
  Country: US (occurrence: US)
  Receive Date: 20131121
  Receipt Date: 20131230
  Transmission Date: 20140711
  Serious: No
  Sender: FDA-Public Use
  Company Number: US-009507513-1311USA007976

PATIENT
  Age: 84 Year
  Sex: Female
  Weight: 63.49 kg

DRUGS (9)
  1. OXYTROL FOR WOMEN [Suspect]
     Indication: POLLAKIURIA
     Dosage: UNK, UNKNOWN
     Route: 062
     Dates: start: 20131004, end: 20131007
  2. ATENOLOL [Concomitant]
     Indication: HYPERTENSION
     Dosage: UNK, UNKNOWN
  3. HYOSCYAMINE [Concomitant]
     Indication: BLADDER DISORDER
     Dosage: UNK, UNKNOWN
  4. ZETIA [Concomitant]
     Indication: BLOOD CHOLESTEROL INCREASED
     Dosage: UNK, UNKNOWN
  5. VITAMIN A [Concomitant]
     Indication: PRODUCT USED FOR UNKNOWN INDICATION
     Dosage: UNK, UNKNOWN
  6. VITAMIN D (UNSPECIFIED) [Concomitant]
     Indication: PRODUCT USED FOR UNKNOWN INDICATION
     Dosage: UNK, UNKNOWN
  7. ASCORBIC ACID [Concomitant]
     Indication: PRODUCT USED FOR UNKNOWN INDICATION
     Dosage: UNK, UNKNOWN
  8. GARLIC [Concomitant]
     Indication: PRODUCT USED FOR UNKNOWN INDICATION
     Dosage: UNK, UNKNOWN
  9. OSTEO-BI-FLEX [Concomitant]
     Indication: PRODUCT USED FOR UNKNOWN INDICATION
     Dosage: UNK, UNKNOWN

REACTIONS (2)
  - Drug ineffective [Unknown]
  - Product adhesion issue [Unknown]
